FAERS Safety Report 6631428-7 (Version None)
Quarter: 2010Q1

REPORT INFORMATION
  Report Type: 
  Country: None (occurrence: None)
  Receive Date: 20100312
  Receipt Date: 20100303
  Transmission Date: 20100710
  Serious: Yes (Hospitalization, Other)
  Sender: FDA-Public Use
  Company Number: US-BAYER-201015485NA

PATIENT
  Age: 36 Year
  Sex: Female

DRUGS (1)
  1. MIRENA [Suspect]
     Indication: CONTRACEPTION
     Dosage: FREQUENCY: CONTINUOUS
     Route: 015
     Dates: start: 20060101, end: 20091101

REACTIONS (5)
  - ABDOMINAL PAIN UPPER [None]
  - DYSPAREUNIA [None]
  - OVARIAN CYST [None]
  - UTERINE CYST [None]
  - UTERINE PERFORATION [None]
